FAERS Safety Report 7951984-6 (Version None)
Quarter: 2011Q4

REPORT INFORMATION
  Report Type: 
  Country: None (occurrence: None)
  Receive Date: 20111201
  Receipt Date: 20111124
  Transmission Date: 20120403
  Serious: Yes (Hospitalization)
  Sender: FDA-Public Use
  Company Number: JP-ABBOTT-11P-087-0879274-00

PATIENT
  Age: 44 Year
  Sex: Male

DRUGS (10)
  1. CLARITHROMYCIN [Suspect]
     Route: 048
     Dates: start: 20110824, end: 20110824
  2. LANSOPRAZOLE [Suspect]
     Indication: HELICOBACTER INFECTION
     Route: 048
     Dates: start: 20110819, end: 20110823
  3. LASIX [Concomitant]
     Indication: OEDEMA
     Route: 048
     Dates: start: 20110624
  4. AMOXICILLIN [Suspect]
     Route: 048
     Dates: start: 20110824, end: 20110824
  5. MICARDIS [Concomitant]
     Indication: HYPERTENSION
     Route: 048
  6. CLARITHROMYCIN [Suspect]
     Indication: HELICOBACTER INFECTION
     Route: 048
     Dates: start: 20110819, end: 20110823
  7. LANSOPRAZOLE [Suspect]
     Dosage: 30 CARD, 1 IN 1 DAY
     Route: 048
     Dates: start: 20110824, end: 20110824
  8. CRESTOR [Concomitant]
     Indication: HYPERLIPIDAEMIA
     Route: 048
  9. AMOXICILLIN [Suspect]
     Indication: HELICOBACTER INFECTION
     Route: 048
     Dates: start: 20110819, end: 20110823
  10. NORVASC [Concomitant]
     Indication: HYPERTENSION
     Route: 048

REACTIONS (3)
  - NAUSEA [None]
  - VOMITING [None]
  - HAEMATEMESIS [None]
